FAERS Safety Report 7812043-6 (Version None)
Quarter: 2011Q4

REPORT INFORMATION
  Report Type: 
  Country: None (occurrence: None)
  Receive Date: 20111013
  Receipt Date: 20110928
  Transmission Date: 20120403
  Serious: Yes (Death)
  Sender: FDA-Public Use
  Company Number: JP-ROCHE-724316

PATIENT
  Sex: Female
  Weight: 52 kg

DRUGS (20)
  1. HERCEPTIN [Suspect]
     Dosage: DOSE LOWERED
     Route: 041
     Dates: start: 20100709, end: 20100709
  2. BETAMETHASONE [Concomitant]
     Dosage: FORM: PERIORAL AGENT
     Route: 046
     Dates: start: 20100507, end: 20100511
  3. HERCEPTIN [Suspect]
     Route: 041
     Dates: start: 20100618, end: 20100618
  4. PROCHLORPERAZINE [Concomitant]
     Route: 048
     Dates: start: 20100528, end: 20100601
  5. SULPIRIDE [Concomitant]
     Route: 048
     Dates: start: 20100528, end: 20100601
  6. BETAMETHASONE [Concomitant]
     Route: 046
     Dates: start: 20100528, end: 20100601
  7. BETAMETHASONE [Concomitant]
     Route: 046
     Dates: start: 20100618, end: 20100622
  8. BETAMETHASONE [Concomitant]
     Route: 046
     Dates: start: 20100709, end: 20100713
  9. SULPIRIDE [Concomitant]
     Route: 048
     Dates: start: 20100507, end: 20100511
  10. HERCEPTIN [Suspect]
     Indication: BREAST CANCER
     Route: 041
     Dates: start: 20100507, end: 20100507
  11. EPIRUBICIN HYDROCHLORIDE [Concomitant]
     Route: 065
     Dates: start: 20100205, end: 20100409
  12. TAXOTERE [Suspect]
     Indication: BREAST CANCER
     Dosage: DOSE IS UNCERTAIN
     Route: 041
     Dates: start: 20100507, end: 20100709
  13. PROCHLORPERAZINE [Concomitant]
     Route: 048
     Dates: start: 20100507, end: 20100511
  14. SULPIRIDE [Concomitant]
     Route: 048
     Dates: start: 20100618, end: 20100622
  15. PROCHLORPERAZINE [Concomitant]
     Route: 048
     Dates: start: 20100709, end: 20100713
  16. CYCLOPHOSPHAMIDE [Suspect]
     Indication: BREAST CANCER
     Dosage: DOSEAGE IS UNCERTAIN
     Route: 065
     Dates: start: 20100205, end: 20100409
  17. FLUOROURACIL [Concomitant]
     Route: 065
     Dates: start: 20100205, end: 20100409
  18. PROCHLORPERAZINE [Concomitant]
     Route: 048
     Dates: start: 20100618, end: 20100622
  19. HERCEPTIN [Suspect]
     Route: 041
     Dates: start: 20100528, end: 20100528
  20. SULPIRIDE [Concomitant]
     Route: 048
     Dates: start: 20100709, end: 20100713

REACTIONS (4)
  - DISSEMINATED INTRAVASCULAR COAGULATION [None]
  - INTERSTITIAL LUNG DISEASE [None]
  - CARDIAC FAILURE [None]
  - CEREBRAL INFARCTION [None]
